FAERS Safety Report 7960339-X (Version None)
Quarter: 2011Q4

REPORT INFORMATION
  Report Type: 
  Country: None (occurrence: None)
  Receive Date: 20111206
  Receipt Date: 20111206
  Transmission Date: 20120403
  Serious: Yes (Death, Hospitalization)
  Sender: FDA-Public Use
  Company Number: PHHO2010JP10665

PATIENT
  Sex: Female
  Weight: 38 kg

DRUGS (13)
  1. MAGNESIUM SULFATE [Concomitant]
     Indication: CONSTIPATION
  2. AFINITOR [Suspect]
     Indication: METASTATIC GASTRIC CANCER
     Dosage: 10 MG, QD
     Route: 048
     Dates: start: 20100629, end: 20100713
  3. LECICARBON [Concomitant]
     Indication: CONSTIPATION
     Dosage: UNK
     Dates: start: 20090725
  4. FAMOTIDINE [Concomitant]
     Indication: PROPHYLAXIS AGAINST GASTROINTESTINAL ULCER
  5. METHYCOBAL [Concomitant]
  6. OXINORM [Concomitant]
     Indication: CANCER PAIN
  7. HALOPERIDOL [Concomitant]
     Indication: NAUSEA
  8. DIOVAN [Concomitant]
     Indication: HYPERTENSION
  9. OXYCONTIN [Concomitant]
     Indication: CANCER PAIN
  10. PROCHLORPERAZINE [Concomitant]
     Indication: NAUSEA
  11. PURSENNID [Concomitant]
     Indication: CONSTIPATION
     Dosage: UNK
     Dates: start: 20090723
  12. CELECOXIB [Concomitant]
     Indication: CANCER PAIN
  13. GASMOTIN [Concomitant]
     Indication: DECREASED APPETITE

REACTIONS (13)
  - HYPERHIDROSIS [None]
  - PERIPHERAL COLDNESS [None]
  - NEOPLASM MALIGNANT [None]
  - DEPRESSED LEVEL OF CONSCIOUSNESS [None]
  - BLOOD PRESSURE IMMEASURABLE [None]
  - NEOPLASM PROGRESSION [None]
  - HYPOGLYCAEMIA [None]
  - CACHEXIA [None]
  - GLUCOSE TOLERANCE IMPAIRED [None]
  - SUDDEN DEATH [None]
  - ATRIAL FIBRILLATION [None]
  - CONSTIPATION [None]
  - ASPARTATE AMINOTRANSFERASE INCREASED [None]
